FAERS Safety Report 6621227-4 (Version None)
Quarter: 2010Q1

REPORT INFORMATION
  Report Type: 
  Country: None (occurrence: None)
  Receive Date: 20100309
  Receipt Date: 20100222
  Transmission Date: 20100710
  Serious: No
  Sender: FDA-Public Use
  Company Number: US-BIOGENIDEC-2010BI006225

PATIENT
  Age: 54 Year
  Sex: Female

DRUGS (3)
  1. AVONEX [Suspect]
     Indication: MULTIPLE SCLEROSIS
     Route: 030
     Dates: start: 20020101, end: 20030101
  2. AVONEX [Suspect]
     Route: 030
     Dates: start: 20030101, end: 20040101
  3. AVONEX [Suspect]
     Route: 030
     Dates: start: 20040101, end: 20041101

REACTIONS (9)
  - DECREASED APPETITE [None]
  - DIARRHOEA [None]
  - DYSPEPSIA [None]
  - FREQUENT BOWEL MOVEMENTS [None]
  - INFLUENZA LIKE ILLNESS [None]
  - SNEEZING [None]
  - THROAT IRRITATION [None]
  - VOMITING [None]
  - WEIGHT DECREASED [None]
